FAERS Safety Report 7633938-2 (Version None)
Quarter: 2011Q3

REPORT INFORMATION
  Report Type: 
  Country: None (occurrence: None)
  Receive Date: 20110725
  Receipt Date: 20110714
  Transmission Date: 20111222
  Serious: Yes (Other)
  Sender: FDA-Public Use
  Company Number: AU-JNJFOC-20110707605

PATIENT
  Sex: Female

DRUGS (7)
  1. STELARA [Suspect]
     Indication: PSORIASIS
     Route: 058
     Dates: start: 20100428
  2. STELARA [Suspect]
     Route: 058
     Dates: start: 20110602
  3. STELARA [Suspect]
     Route: 058
     Dates: start: 20100528
  4. TOPICAL STEROID [Concomitant]
  5. STELARA [Suspect]
     Route: 058
     Dates: start: 20110301
  6. STELARA [Suspect]
     Route: 058
     Dates: start: 20101129
  7. STELARA [Suspect]
     Route: 058
     Dates: start: 20100828

REACTIONS (1)
  - KNEE ARTHROPLASTY [None]
